FAERS Safety Report 16754984 (Version 1)
Quarter: 2019Q3

REPORT INFORMATION
  Report Type: Spontaneous
  Country: US (occurrence: US)
  Receive Date: 20190711
  Receipt Date: 20190711
  Transmission Date: 20191005
  Serious: Yes (Hospitalization)
  Sender: FDA-Public Use
  Company Number: None

PATIENT
  Age: 46 Year
  Sex: Male

DRUGS (8)
  1. TEMOZOLOMIDE CAP [Suspect]
     Active Substance: TEMOZOLOMIDE
     Indication: NON-HODGKIN^S LYMPHOMA
     Dosage: ?          OTHER FREQUENCY:QD 7-11  Q28D;?
     Route: 048
     Dates: start: 20190509
  2. KC1 [Concomitant]
  3. SMZ/TMP [Concomitant]
     Active Substance: SULFAMETHOXAZOLE\TRIMETHOPRIM
  4. TEMOZOLOMIDE  5MG CAP [Suspect]
     Active Substance: TEMOZOLOMIDE
     Indication: NON-HODGKIN^S LYMPHOMA
     Dosage: ?          OTHER FREQUENCY:QD 7-11 Q28D;?
     Route: 048
     Dates: start: 20190509
  5. RANITIDINE. [Concomitant]
     Active Substance: RANITIDINE
  6. NEUPOGEN [Suspect]
     Active Substance: FILGRASTIM
     Indication: NON-HODGKIN^S LYMPHOMA
     Dosage: ?          OTHER FREQUENCY:QD X 3D;?
     Route: 058
     Dates: start: 20190607
  7. ACYCLOVIR. [Concomitant]
     Active Substance: ACYCLOVIR
  8. ALPRAZOLAM. [Concomitant]
     Active Substance: ALPRAZOLAM

REACTIONS (1)
  - Hospitalisation [None]

NARRATIVE: CASE EVENT DATE: 20190709
